FAERS Safety Report 7060340-7 (Version None)
Quarter: 2010Q4

REPORT INFORMATION
  Report Type: 
  Country: None (occurrence: None)
  Receive Date: 20101025
  Receipt Date: 20101019
  Transmission Date: 20110411
  Serious: Yes (Life-Threatening, Hospitalization)
  Sender: FDA-Public Use
  Company Number: A0888370A

PATIENT
  Sex: Female
  Weight: 87 kg

DRUGS (6)
  1. AVANDIA [Suspect]
     Dosage: 4MG PER DAY
     Route: 048
     Dates: start: 20090701, end: 20100801
  2. SERETIDE [Suspect]
     Indication: PRODUCT USED FOR UNKNOWN INDICATION
     Dosage: 1PUFF TWICE PER DAY
     Route: 055
     Dates: end: 20100801
  3. GALVUS [Concomitant]
     Dosage: 3TAB PER DAY
     Route: 048
  4. DIOVAN HCT [Concomitant]
     Dates: start: 20060101
  5. CRESTOR [Concomitant]
     Dosage: 10MGD PER DAY
     Route: 048
     Dates: start: 20060101
  6. INSULIN [Concomitant]
     Dosage: 30UNIT PER DAY
     Route: 058
     Dates: start: 20060101

REACTIONS (3)
  - ANGIOPLASTY [None]
  - DYSPNOEA [None]
  - PULMONARY OEDEMA [None]
